FAERS Safety Report 6472865-3 (Version None)
Quarter: 2009Q4

REPORT INFORMATION
  Report Type: 
  Country: None (occurrence: None)
  Receive Date: 20091201
  Receipt Date: 20091123
  Transmission Date: 20100525
  Serious: Yes (Life-Threatening)
  Sender: FDA-Public Use
  Company Number: CA-1171676

PATIENT
  Sex: Male

DRUGS (1)
  1. VIGAMOX [Suspect]
     Dosage: OPHTHALMIC
     Route: 047

REACTIONS (1)
  - ANAPHYLACTIC SHOCK [None]
